FAERS Safety Report 9176175 (Version 1)
Quarter: 2013Q1

REPORT INFORMATION
  Report Type: Spontaneous
  Country: NZ (occurrence: NZ)
  Receive Date: 20130321
  Receipt Date: 20130321
  Transmission Date: 20140127
  Serious: Yes (Hospitalization)
  Sender: FDA-Public Use
  Company Number: NZ-AMGEN-NZLSP2013002223

PATIENT
  Age: 55 Year
  Sex: Male

DRUGS (3)
  1. ENBREL [Suspect]
     Indication: ANKYLOSING SPONDYLITIS
     Dosage: 50 MG, WEEKLY
     Route: 058
     Dates: start: 20121120, end: 20121224
  2. PREDNISONE [Concomitant]
     Indication: ANKYLOSING SPONDYLITIS
     Dosage: 5 MG, UNK
  3. NAPROXEN [Concomitant]
     Dosage: 1000 MG, UNK
     Dates: end: 20121221

REACTIONS (3)
  - Mitral valve incompetence [Recovered/Resolved with Sequelae]
  - Subacute endocarditis [Recovered/Resolved with Sequelae]
  - Streptococcal infection [Recovered/Resolved with Sequelae]
